FAERS Safety Report 4867915-1 (Version None)
Quarter: 2005Q4

REPORT INFORMATION
  Report Type: 
  Country: None (occurrence: None)
  Receive Date: 20051223
  Receipt Date: 20051208
  Transmission Date: 20060501
  Serious: Yes (Other)
  Sender: FDA-Public Use
  Company Number: S05-FRA-04643-01

PATIENT
  Age: 43 Year
  Sex: Female

DRUGS (5)
  1. SEROPLEX (ESCITALOPRAM) (ESCITALOPRAM) [Suspect]
     Indication: DEPRESSION
     Dosage: 20 MG QD PO
     Route: 048
     Dates: end: 20051120
  2. SEROPLEX (ESCITALOPRAM)(ESCITALOPRAM) [Suspect]
     Indication: DEPRESSION
     Dosage: 10 MG QD PO
     Route: 048
     Dates: start: 20050914
  3. BROMAZEPAM [Concomitant]
  4. MEPRONIZINE [Concomitant]
  5. HEPT-A-MYL (HEPATAMINOL HYDROCHLORIDE) [Concomitant]

REACTIONS (6)
  - ASTHENIA [None]
  - CHOLESTASIS [None]
  - HEPATIC FAILURE [None]
  - HEPATITIS [None]
  - PROTHROMBIN TIME RATIO DECREASED [None]
  - WEIGHT DECREASED [None]
